FAERS Safety Report 7713618-5 (Version None)
Quarter: 2011Q3

REPORT INFORMATION
  Report Type: 
  Country: None (occurrence: None)
  Receive Date: 20110826
  Receipt Date: 20110817
  Transmission Date: 20111222
  Serious: Yes (Hospitalization, Other)
  Sender: FDA-Public Use
  Company Number: US-ROCHE-797774

PATIENT
  Sex: Male

DRUGS (4)
  1. PEGINTERFERON ALFA-2A [Suspect]
     Indication: HEPATITIS C
     Route: 065
     Dates: start: 20040101, end: 20050301
  2. PEGINTERFERON ALFA-2A [Suspect]
     Route: 065
     Dates: start: 20110719
  3. RIBAVIRIN [Suspect]
     Indication: HEPATITIS C
     Route: 065
     Dates: start: 20040101, end: 20050301
  4. RIBAVIRIN [Suspect]
     Route: 065
     Dates: start: 20110719

REACTIONS (4)
  - CHOLELITHIASIS [None]
  - PANCREATITIS [None]
  - WEIGHT DECREASED [None]
  - NO THERAPEUTIC RESPONSE [None]
